FAERS Safety Report 4563069-X (Version None)
Quarter: 2005Q1

REPORT INFORMATION
  Report Type: 
  Country: None (occurrence: None)
  Receive Date: 20050127
  Receipt Date: 20050118
  Transmission Date: 20050727
  Serious: Yes (Death)
  Sender: FDA-Public Use
  Company Number: ESWYE349118JAN05

PATIENT
  Sex: Female

DRUGS (2)
  1. ENBREL [Suspect]
     Indication: RHEUMATOID ARTHRITIS
     Dates: start: 20040101
  2. INSULIN [Concomitant]
     Indication: DIABETES MELLITUS INSULIN-DEPENDENT

REACTIONS (2)
  - DEATH [None]
  - NASOPHARYNGITIS [None]
